FAERS Safety Report 9381612 (Version 3)
Quarter: 2013Q3

REPORT INFORMATION
  Report Type: Spontaneous
  Country: IT (occurrence: IT)
  Receive Date: 20130703
  Receipt Date: 20130805
  Transmission Date: 20140515
  Serious: Yes (Other)
  Sender: FDA-Public Use
  Company Number: IT-SANOFI-AVENTIS-2013SA064882

PATIENT
  Age: 64 Year
  Sex: Female

DRUGS (5)
  1. ARAVA [Suspect]
     Indication: RHEUMATOID ARTHRITIS
     Route: 048
     Dates: start: 201301, end: 20130622
  2. DELTACORTENE [Concomitant]
  3. PANTOPRAZOLE [Concomitant]
     Route: 048
  4. XANAX [Concomitant]
     Route: 048
  5. TACHIDOL [Concomitant]

REACTIONS (5)
  - Drug-induced liver injury [Recovering/Resolving]
  - Jaundice [Recovering/Resolving]
  - Transaminases increased [Recovering/Resolving]
  - Nausea [Recovering/Resolving]
  - Abdominal pain upper [Recovering/Resolving]
